FAERS Safety Report 8796711 (Version 1)
Quarter: 2012Q4

REPORT INFORMATION
  Report Type: Report from Study
  Country: AR (occurrence: AR)
  Receive Date: 20120919
  Receipt Date: 20120919
  Transmission Date: 20130627
  Serious: Yes (Hospitalization, Disabling)
  Sender: FDA-Public Use
  Company Number: PHHO2011AR16934

PATIENT
  Age: 54 Year
  Sex: Female
  Weight: 50.5 kg

DRUGS (2)
  1. QAB149 [Suspect]
     Indication: CHRONIC OBSTRUCTIVE PULMONARY DISEASE
     Dosage: 150 ug, QD
     Dates: start: 20110503, end: 20111004
  2. QAB149 [Suspect]
     Dosage: 150 ug, QD
     Dates: start: 20111007

REACTIONS (1)
  - Disease progression [Recovered/Resolved]
